FAERS Safety Report 7392277-8 (Version None)
Quarter: 2011Q2

REPORT INFORMATION
  Report Type: 
  Country: None (occurrence: None)
  Receive Date: 20110404
  Receipt Date: 20110324
  Transmission Date: 20111010
  Serious: Yes (Hospitalization)
  Sender: FDA-Public Use
  Company Number: US-ELI_LILLY_AND_COMPANY-US201103008063

PATIENT
  Sex: Female

DRUGS (2)
  1. CARBOPLATIN [Concomitant]
     Dosage: UNK
  2. ALIMTA [Suspect]
     Indication: LUNG NEOPLASM MALIGNANT
     Dosage: 500 MG/M2, UNK

REACTIONS (3)
  - CYANOSIS [None]
  - BLOOD COUNT ABNORMAL [None]
  - ORAL PAIN [None]
